FAERS Safety Report 5207234-7 (Version None)
Quarter: 2007Q1

REPORT INFORMATION
  Report Type: 
  Country: None (occurrence: None)
  Receive Date: 20070112
  Receipt Date: 20070109
  Transmission Date: 20070707
  Serious: Yes (Hospitalization)
  Sender: FDA-Public Use
  Company Number: 2006AP06178

PATIENT
  Age: 1163 Day
  Sex: Female

DRUGS (9)
  1. PULMICORT RESPULES [Suspect]
     Indication: ASTHMA
     Route: 055
     Dates: start: 20060915
  2. PULMICORT RESPULES [Suspect]
     Dosage: DOSE REDUCED
     Route: 055
  3. ONON [Concomitant]
     Indication: ASTHMA
     Route: 048
     Dates: start: 20060414, end: 20060914
  4. ONON [Concomitant]
     Route: 048
     Dates: start: 20060915
  5. ARDEPHYLLIN [Concomitant]
     Indication: ASTHMA
     Route: 048
     Dates: start: 20060416
  6. INTAL [Concomitant]
     Indication: ASTHMA
     Route: 055
     Dates: start: 20060513, end: 20060804
  7. INTAL [Concomitant]
     Route: 055
     Dates: start: 20060805
  8. MEPTIN [Concomitant]
     Indication: ASTHMA
     Route: 055
     Dates: start: 20060513, end: 20060804
  9. MEPTIN [Concomitant]
     Route: 055
     Dates: start: 20060805

REACTIONS (1)
  - PNEUMONIA [None]
